FAERS Safety Report 7806223-3 (Version None)
Quarter: 2011Q4

REPORT INFORMATION
  Report Type: 
  Country: None (occurrence: None)
  Receive Date: 20111011
  Receipt Date: 20110928
  Transmission Date: 20120403
  Serious: Yes (Death)
  Sender: FDA-Public Use
  Company Number: DE-PFIZER INC-2011216832

PATIENT
  Age: 64 Year
  Sex: Female

DRUGS (9)
  1. CRIZOTINIB [Suspect]
     Indication: NON-SMALL CELL LUNG CANCER
     Dosage: 250 MG, 2X/DAY
     Route: 048
     Dates: start: 20110823
  2. DEXAMETHASONE [Suspect]
     Indication: PROPHYLAXIS
     Dosage: 8 MG, 1X/DAY, IN THE MORNING
     Route: 048
     Dates: start: 20110625
  3. THYROXIN [Concomitant]
     Indication: HYPOTHYROIDISM
     Dosage: 100 UG, 1X/DAY
     Route: 048
  4. VOMEX A ^ENDOPHARM^ [Concomitant]
     Indication: PROPHYLAXIS
     Dosage: UNK
     Dates: start: 20110718
  5. DEXAMETHASONE [Suspect]
     Dosage: 2 MG, 1X/DAY, AT THE DAYTIME
     Route: 050
     Dates: start: 20110625
  6. LORAZEPAM [Concomitant]
     Indication: INSOMNIA
     Dosage: UNK
     Route: 048
     Dates: start: 20110718
  7. DULCOLAX [Concomitant]
     Indication: CONSTIPATION
     Dosage: UNK
     Route: 048
     Dates: start: 20110907, end: 20110908
  8. PANTOPRAZOLE SODIUM [Concomitant]
     Indication: PROPHYLAXIS
     Dosage: UNK
     Route: 048
     Dates: start: 20110718
  9. AMPHO MORONAL ^BRISTOL-MYERS SQUIBB^ [Concomitant]
     Indication: PROPHYLAXIS
     Dosage: 6 X 1 PIPE
     Route: 048
     Dates: start: 20110718

REACTIONS (2)
  - BRONCHOPULMONARY ASPERGILLOSIS [None]
  - SEPSIS [None]
